FAERS Safety Report 10231399 (Version 1)
Quarter: 2014Q2

REPORT INFORMATION
  Report Type: Spontaneous
  Country: BR (occurrence: BR)
  Receive Date: 20140611
  Receipt Date: 20140611
  Transmission Date: 20141212
  Serious: Yes (Hospitalization)
  Sender: FDA-Public Use
  Company Number: BR-ASTRAZENECA-2014SE39199

PATIENT
  Age: 76 Year
  Sex: Female
  Weight: 84 kg

DRUGS (5)
  1. CRESTOR [Suspect]
     Indication: BLOOD CHOLESTEROL INCREASED
     Route: 048
     Dates: start: 201212, end: 201312
  2. BRILINTA [Suspect]
     Indication: ANGINA UNSTABLE
     Route: 048
     Dates: start: 201405
  3. METFORMIN HYDROCHLORIDE [Suspect]
     Indication: DIABETES MELLITUS
     Route: 048
  4. ARADOIS [Concomitant]
     Indication: HYPERTENSION
     Route: 048
  5. UNKNOWN [Concomitant]
     Indication: BLOOD CHOLESTEROL INCREASED
     Route: 048
     Dates: start: 201312

REACTIONS (3)
  - Arterial occlusive disease [Recovered/Resolved]
  - Drug ineffective [Unknown]
  - Blood cholesterol increased [Recovering/Resolving]
